FAERS Safety Report 6832710-0 (Version None)
Quarter: 2010Q3

REPORT INFORMATION
  Report Type: 
  Country: None (occurrence: None)
  Receive Date: 20100712
  Receipt Date: 20070709
  Transmission Date: 20110219
  Serious: No
  Sender: FDA-Public Use
  Company Number: US-PFIZER INC-2007021432

PATIENT
  Sex: Female
  Weight: 63.5 kg

DRUGS (7)
  1. CHANTIX [Suspect]
     Indication: SMOKING CESSATION THERAPY
     Route: 048
     Dates: start: 20070308
  2. ZOLOFT [Concomitant]
  3. MAXZIDE [Concomitant]
  4. NORVASC [Concomitant]
  5. LIPITOR [Concomitant]
  6. ADVAIR DISKUS 100/50 [Concomitant]
  7. TRAZODONE [Concomitant]
     Indication: SLEEP DISORDER

REACTIONS (3)
  - LOW DENSITY LIPOPROTEIN INCREASED [None]
  - STRESS [None]
  - TOBACCO USER [None]
